FAERS Safety Report 14666608 (Version 1)
Quarter: 2018Q1

REPORT INFORMATION
  Report Type: Spontaneous
  Country: BR (occurrence: BR)
  Receive Date: 20180322
  Receipt Date: 20180322
  Transmission Date: 20180509
  Serious: Yes (Hospitalization)
  Sender: FDA-Public Use
  Company Number: BR-BAXTER-2018BAX008609

PATIENT
  Age: 65 Year
  Sex: Female
  Weight: 80 kg

DRUGS (25)
  1. GENUXAL [Suspect]
     Active Substance: CYCLOPHOSPHAMIDE
     Indication: NON-HODGKIN^S LYMPHOMA
     Dosage: SIX CYCLES OF CHOEP PROTOCOL
     Route: 042
  2. GENUXAL [Suspect]
     Active Substance: CYCLOPHOSPHAMIDE
     Dosage: EIGHTH CYCLE OF CHOEP PROTOCOL
     Route: 042
     Dates: start: 20180110
  3. EPOSIDO [Suspect]
     Active Substance: ETOPOSIDE
     Indication: NON-HODGKIN^S LYMPHOMA
     Dosage: SIX CYCLES OF CHOEP PROTOCOL
     Route: 042
  4. DIAZEPAM. [Concomitant]
     Active Substance: DIAZEPAM
     Indication: PRODUCT USED FOR UNKNOWN INDICATION
     Route: 065
  5. FAULDOXO [Suspect]
     Active Substance: DOXORUBICIN HYDROCHLORIDE
     Indication: NON-HODGKIN^S LYMPHOMA
     Dosage: SIX CYCLES OF CHOEP PROTOCOL
     Route: 042
  6. PANTOPRAZOLE [Concomitant]
     Active Substance: PANTOPRAZOLE
     Indication: PRODUCT USED FOR UNKNOWN INDICATION
     Route: 065
  7. BACTRIM [Concomitant]
     Active Substance: SULFAMETHOXAZOLE\TRIMETHOPRIM
     Indication: PRODUCT USED FOR UNKNOWN INDICATION
     Route: 065
  8. FAULDOXO [Suspect]
     Active Substance: DOXORUBICIN HYDROCHLORIDE
     Dosage: SEVENTH CYCLE OF CHOEP PROTOCOL
     Route: 042
     Dates: start: 20171213, end: 20171213
  9. FAULDOXO [Suspect]
     Active Substance: DOXORUBICIN HYDROCHLORIDE
     Dosage: EIGHTH CYCLE OF CHOEP PROTOCOL
     Route: 042
     Dates: start: 20180110
  10. FAULDVINCRI [Suspect]
     Active Substance: VINCRISTINE SULFATE
     Indication: NON-HODGKIN^S LYMPHOMA
     Dosage: SIX CYCLES OF CHOEP PROTOCOL
     Route: 042
  11. FAULDVINCRI [Suspect]
     Active Substance: VINCRISTINE SULFATE
     Dosage: EIGHTH CYCLE OF CHOEP PROTOCOL
     Route: 042
     Dates: start: 20180110
  12. CARBAMAZEPIN [Concomitant]
     Active Substance: CARBAMAZEPINE
     Indication: PRODUCT USED FOR UNKNOWN INDICATION
     Route: 065
  13. EPOSIDO [Suspect]
     Active Substance: ETOPOSIDE
     Dosage: EIGHTH CYCLE OF CHOEP PROTOCOL
     Route: 042
     Dates: start: 20180110
  14. PREDNISONE. [Suspect]
     Active Substance: PREDNISONE
     Dosage: EIGHTH CYCLE OF CHOEP PROTOCOL
     Route: 065
     Dates: start: 20180110
  15. ALOPURINOL [Concomitant]
     Active Substance: ALLOPURINOL
     Indication: PRODUCT USED FOR UNKNOWN INDICATION
     Route: 065
  16. METADONA [Concomitant]
     Active Substance: METHADONE HYDROCHLORIDE
     Indication: PRODUCT USED FOR UNKNOWN INDICATION
     Route: 065
  17. PREDNISONE. [Suspect]
     Active Substance: PREDNISONE
     Indication: NON-HODGKIN^S LYMPHOMA
     Dosage: SIX CYCLE OF CHOEP PROTOCOL
     Route: 065
  18. DILTIAZEM. [Concomitant]
     Active Substance: DILTIAZEM
     Indication: PRODUCT USED FOR UNKNOWN INDICATION
     Route: 065
  19. DOMPERIDONA [Concomitant]
     Indication: PRODUCT USED FOR UNKNOWN INDICATION
     Route: 065
  20. FAULDVINCRI [Suspect]
     Active Substance: VINCRISTINE SULFATE
     Dosage: SEVENTH CYCLE OF CHOEP PROTOCOL
     Route: 042
     Dates: start: 20171213, end: 20171213
  21. PREDNISONE. [Suspect]
     Active Substance: PREDNISONE
     Dosage: SEVENTH CYCLE OF CHOEP PROTOCOL
     Route: 065
     Dates: start: 20171213, end: 20171213
  22. NPH INSULIN [Concomitant]
     Active Substance: INSULIN BEEF
     Indication: PRODUCT USED FOR UNKNOWN INDICATION
     Route: 065
  23. APIDRA INSULIN [Concomitant]
     Indication: PRODUCT USED FOR UNKNOWN INDICATION
     Route: 065
  24. GENUXAL [Suspect]
     Active Substance: CYCLOPHOSPHAMIDE
     Dosage: SEVENTH CYCLE OF CHOEP PROTOCOL
     Route: 042
     Dates: start: 20171213, end: 20171213
  25. EPOSIDO [Suspect]
     Active Substance: ETOPOSIDE
     Dosage: SEVENTH CYCLE OF CHOEP PROTOCOL
     Route: 042
     Dates: start: 20171213, end: 20171213

REACTIONS (2)
  - Febrile neutropenia [Recovered/Resolved]
  - Diastolic dysfunction [Recovering/Resolving]

NARRATIVE: CASE EVENT DATE: 20171221
